FAERS Safety Report 9359044 (Version 2)
Quarter: 2014Q1

REPORT INFORMATION
  Report Type: Spontaneous
  Country: US (occurrence: US)
  Receive Date: 20130620
  Receipt Date: 20140214
  Transmission Date: 20141002
  Serious: Yes (Hospitalization)
  Sender: FDA-Public Use
  Company Number: US-B.I. PHARMACEUTICALS,INC./RIDGEFIELD-2013-BI-17401BP

PATIENT
  Sex: Female
  Weight: 55.79 kg

DRUGS (11)
  1. PRADAXA [Suspect]
     Indication: ATRIAL FIBRILLATION
     Dosage: 150 MG
     Dates: start: 20120409, end: 20120427
  2. ASPIRIN [Suspect]
     Indication: PRODUCT USED FOR UNKNOWN INDICATION
  3. OXYGEN [Concomitant]
     Indication: PULMONARY HYPERTENSION
  4. ACETAMINOPHEN [Concomitant]
  5. LASIX [Concomitant]
     Indication: CARDIAC FAILURE CONGESTIVE
  6. ALPRAZOLAM [Concomitant]
  7. ASCORBIC ACID [Concomitant]
  8. DIGOXIN [Concomitant]
     Indication: CARDIAC FAILURE CONGESTIVE
  9. DILTIAZEM HCL [Concomitant]
  10. FERROUS SULFATE [Concomitant]
  11. GLIPIZIDE [Concomitant]
     Indication: DIABETES MELLITUS

REACTIONS (3)
  - Gastrointestinal haemorrhage [Recovered/Resolved]
  - Iron deficiency anaemia [Unknown]
  - Ecchymosis [Unknown]
